FAERS Safety Report 4459341-4 (Version None)
Quarter: 2004Q3

REPORT INFORMATION
  Report Type: 
  Country: None (occurrence: None)
  Receive Date: 20040924
  Receipt Date: 20040920
  Transmission Date: 20050211
  Serious: Yes (Death)
  Sender: FDA-Public Use
  Company Number: 2004S1002411

PATIENT
  Age: 87 Year
  Sex: Female

DRUGS (5)
  1. CLOZAPINE [Suspect]
     Indication: PSYCHOTIC DISORDER
     Dosage: 18.75 MG QD, ORAL
     Route: 048
     Dates: start: 20030201, end: 20040723
  2. POTASSIUM CHLORIDE [Concomitant]
  3. NITROGLYCERIN [Concomitant]
  4. MULTIVITAMIN [Concomitant]
  5. ASPIRIN [Concomitant]

REACTIONS (1)
  - DEATH [None]
